FAERS Safety Report 7305791-8 (Version None)
Quarter: 2011Q1

REPORT INFORMATION
  Report Type: 
  Country: None (occurrence: None)
  Receive Date: 20110222
  Receipt Date: 20110215
  Transmission Date: 20110831
  Serious: Yes (Other)
  Sender: FDA-Public Use
  Company Number: B0701082A

PATIENT
  Age: 32 Month
  Sex: Male

DRUGS (1)
  1. ZINADOL [Suspect]
     Indication: PYREXIA
     Dosage: 250MG PER DAY
     Route: 048
     Dates: start: 20110210

REACTIONS (2)
  - NERVOUSNESS [None]
  - AGGRESSION [None]
